FAERS Safety Report 5405548-9 (Version None)
Quarter: 2007Q3

REPORT INFORMATION
  Report Type: 
  Country: None (occurrence: None)
  Receive Date: 20070803
  Receipt Date: 20070723
  Transmission Date: 20080115
  Serious: Yes (Other)
  Sender: FDA-Public Use
  Company Number: US-PFIZER INC-2007062354

PATIENT
  Sex: Female
  Weight: 61.818 kg

DRUGS (4)
  1. LYRICA [Suspect]
  2. CHANTIX [Suspect]
     Indication: SMOKING CESSATION THERAPY
     Dates: start: 20070701, end: 20070701
  3. MOTRIN [Concomitant]
  4. CARISOPRODOL [Concomitant]
     Indication: INTERVERTEBRAL DISC PROTRUSION

REACTIONS (3)
  - ABDOMINAL PAIN [None]
  - BLOOD CHOLESTEROL INCREASED [None]
  - INTESTINAL OBSTRUCTION [None]
